FAERS Safety Report 23259765 (Version 4)
Quarter: 2024Q1

REPORT INFORMATION
  Report Type: Spontaneous
  Country: US (occurrence: US)
  Receive Date: 20231204
  Receipt Date: 20240119
  Transmission Date: 20240410
  Serious: Yes (Other)
  Sender: FDA-Public Use
  Company Number: US-PPDUS-2023ST004636

PATIENT
  Age: 68 Year
  Sex: Female

DRUGS (4)
  1. ORSERDU [Suspect]
     Active Substance: ELACESTRANT
     Indication: Product used for unknown indication
     Dosage: 345MG ONCE DAILY.
     Route: 048
     Dates: start: 20231122
  2. OXYCODONE [Concomitant]
     Active Substance: OXYCODONE
     Indication: Product used for unknown indication
  3. XGEVA [Concomitant]
     Active Substance: DENOSUMAB
     Indication: Bone cancer
  4. ONDANSETRON [Concomitant]
     Active Substance: ONDANSETRON
     Indication: Product used for unknown indication

REACTIONS (18)
  - Immune thrombocytopenia [Unknown]
  - Foreign body in throat [Unknown]
  - Discomfort [Recovering/Resolving]
  - Pain [Recovered/Resolved]
  - Family stress [Unknown]
  - Feeling abnormal [Unknown]
  - Product size issue [Recovered/Resolved]
  - Weight decreased [Unknown]
  - Bone pain [Unknown]
  - Decreased appetite [Not Recovered/Not Resolved]
  - Headache [Not Recovered/Not Resolved]
  - Vomiting [Unknown]
  - Arthralgia [Unknown]
  - Pain in extremity [Unknown]
  - Dysgeusia [Unknown]
  - Appetite disorder [Unknown]
  - Tooth extraction [Unknown]
  - Bone cancer [Unknown]

NARRATIVE: CASE EVENT DATE: 20231128
